FAERS Safety Report 8835420 (Version 1)
Quarter: 2012Q4

REPORT INFORMATION
  Report Type: Report from Study
  Country: BE (occurrence: BE)
  Receive Date: 20121011
  Receipt Date: 20121011
  Transmission Date: 20130627
  Serious: Yes (Other)
  Sender: FDA-Public Use
  Company Number: BE-ROCHE-1143535

PATIENT
  Sex: Female

DRUGS (2)
  1. ZELBORAF [Suspect]
     Indication: PRODUCT USED FOR UNKNOWN INDICATION
     Route: 048
     Dates: start: 20120620
  2. ZELBORAF [Suspect]
     Route: 048
     Dates: start: 201207

REACTIONS (2)
  - Rash [Unknown]
  - Skin lesion [Unknown]
